FAERS Safety Report 6843689-X (Version None)
Quarter: 2010Q3

REPORT INFORMATION
  Report Type: 
  Country: None (occurrence: None)
  Receive Date: 20100715
  Receipt Date: 20100706
  Transmission Date: 20110219
  Serious: Yes (Other)
  Sender: FDA-Public Use
  Company Number: US-ASTRAZENECA-2010SE31463

PATIENT
  Sex: Female

DRUGS (2)
  1. PRILOSEC [Suspect]
     Route: 048
  2. CHEMOTHERAPY [Suspect]
     Route: 065

REACTIONS (2)
  - GASTROINTESTINAL DISORDER [None]
  - HODGKIN'S DISEASE [None]
